FAERS Safety Report 5939467-6 (Version None)
Quarter: 2008Q4

REPORT INFORMATION
  Report Type: 
  Country: None (occurrence: None)
  Receive Date: 20081029
  Receipt Date: 20081014
  Transmission Date: 20090506
  Serious: Yes (Other)
  Sender: FDA-Public Use
  Company Number: JPI-P-004981

PATIENT
  Age: 5 Decade
  Sex: Male

DRUGS (2)
  1. LUVOX [Suspect]
     Indication: DRUG USE FOR UNKNOWN INDICATION
     Dosage: ORAL
     Route: 048
  2. INTESTINAL REGULATOR (ALL OTHER THERAPEUTIC PRODUCTS) [Concomitant]

REACTIONS (7)
  - ABNORMAL BEHAVIOUR [None]
  - ANGER [None]
  - CONDITION AGGRAVATED [None]
  - HYPERACUSIS [None]
  - INSOMNIA [None]
  - IRRITABILITY [None]
  - LOGORRHOEA [None]
